FAERS Safety Report 25585817 (Version 1)
Quarter: 2025Q3

REPORT INFORMATION
  Report Type: Spontaneous
  Country: US (occurrence: US)
  Receive Date: 20250721
  Receipt Date: 20250721
  Transmission Date: 20251020
  Serious: No
  Sender: SANOFI AVENTIS
  Company Number: US-SA-2025SA205550

PATIENT
  Sex: Female
  Weight: 71.91 kg

DRUGS (17)
  1. DUPIXENT [Suspect]
     Active Substance: DUPILUMAB
     Indication: Dermatitis atopic
     Dosage: 300 MG, QOW
     Route: 058
  2. DUPIXENT [Suspect]
     Active Substance: DUPILUMAB
     Indication: Asthma
  3. SYSTANE (HYPROMELLOSE 2910 (4000 MPA.S)) [Concomitant]
     Active Substance: HYPROMELLOSE 2910 (4000 MPA.S)
  4. MELOXICAM [Concomitant]
     Active Substance: MELOXICAM
  5. SYNTHROID [Concomitant]
     Active Substance: LEVOTHYROXINE SODIUM
  6. REPATHA [Concomitant]
     Active Substance: EVOLOCUMAB
  7. VITAMIN C [Concomitant]
     Active Substance: ASCORBIC ACID
  8. RECLAST [Concomitant]
     Active Substance: ZOLEDRONIC ACID
  9. ALBUTEROL SULFATE [Concomitant]
     Active Substance: ALBUTEROL SULFATE
  10. VITAMIN D3 [Concomitant]
     Active Substance: CHOLECALCIFEROL
  11. VITAMIN B12 [Concomitant]
     Active Substance: CYANOCOBALAMIN
  12. SYMBICORT [Concomitant]
     Active Substance: BUDESONIDE\FORMOTEROL FUMARATE DIHYDRATE
  13. PANTOPRAZOLE SODIUM [Concomitant]
     Active Substance: PANTOPRAZOLE SODIUM
  14. TYLENOL 8HR [Concomitant]
     Active Substance: ACETAMINOPHEN
  15. ATENOLOL [Concomitant]
     Active Substance: ATENOLOL
  16. HYDROCHLOROTHIAZIDE\LOSARTAN POTASSIUM [Concomitant]
     Active Substance: HYDROCHLOROTHIAZIDE\LOSARTAN POTASSIUM
  17. Turmeric + ginger with bioperine [Concomitant]

REACTIONS (2)
  - Rash [Not Recovered/Not Resolved]
  - Therapeutic response shortened [Unknown]
